FAERS Safety Report 4603904-X (Version None)
Quarter: 2005Q1

REPORT INFORMATION
  Report Type: 
  Country: None (occurrence: None)
  Receive Date: 20050308
  Receipt Date: 20050308
  Transmission Date: 20050727
  Serious: Yes (Other)
  Sender: FDA-Public Use
  Company Number: None

PATIENT
  Age: 41 Year
  Sex: Female
  Weight: 68.0396 kg

DRUGS (3)
  1. ALBUTEROL [Suspect]
     Indication: BRONCHITIS
     Dosage: 2 INHALATION  EVERY 4 HOURS  ORAL
     Route: 048
     Dates: start: 20050302, end: 20050304
  2. ROBITUSSIN OTC [Concomitant]
  3. NSAID [Concomitant]

REACTIONS (2)
  - PHARMACEUTICAL PRODUCT COMPLAINT [None]
  - RASH [None]
